FAERS Safety Report 12047354 (Version 4)
Quarter: 2016Q2

REPORT INFORMATION
  Report Type: Report from Study
  Country: CA (occurrence: CA)
  Receive Date: 20160209
  Receipt Date: 20160419
  Transmission Date: 20160815
  Serious: Yes (Other)
  Sender: FDA-Public Use
  Company Number: CA-UCBSA-2016004244

PATIENT
  Sex: Female

DRUGS (6)
  1. CERTOLIZUMAB PEGOL PSA [Suspect]
     Active Substance: CERTOLIZUMAB PEGOL
     Indication: PSORIATIC ARTHROPATHY
     Dosage: 400 MG, EV 2 WEEKS(QOW)
     Route: 058
     Dates: start: 20150416, end: 20150514
  2. PREDNISONE. [Concomitant]
     Active Substance: PREDNISONE
     Dosage: DOSE INCREASED
  3. PREDNISONE. [Concomitant]
     Active Substance: PREDNISONE
     Indication: RHEUMATOID ARTHRITIS
     Dosage: UNK
  4. CERTOLIZUMAB PEGOL PSA [Suspect]
     Active Substance: CERTOLIZUMAB PEGOL
     Dosage: 200 MG, EV 2 WEEKS(QOW)
     Route: 058
     Dates: start: 20150528
  5. ELAVIL [Concomitant]
     Active Substance: AMITRIPTYLINE HYDROCHLORIDE
     Indication: SLEEP DISORDER
     Dosage: UNK
  6. CORTISONE [Concomitant]
     Active Substance: CORTISONE\HYDROCORTISONE
     Indication: PAIN
     Dosage: UNK

REACTIONS (14)
  - Muscular weakness [Unknown]
  - Pyrexia [Unknown]
  - Salivary gland mass [Unknown]
  - Psoriatic arthropathy [Unknown]
  - Arthralgia [Unknown]
  - Parosmia [Unknown]
  - Oedema peripheral [Unknown]
  - Insomnia [Unknown]
  - Fall [Unknown]
  - Influenza [Unknown]
  - Dizziness [Unknown]
  - Headache [Unknown]
  - Abdominal pain upper [Unknown]
  - Discomfort [Unknown]
